FAERS Safety Report 16913686 (Version 1)
Quarter: 2019Q4

REPORT INFORMATION
  Report Type: Spontaneous
  Country: DO (occurrence: DO)
  Receive Date: 20191014
  Receipt Date: 20191014
  Transmission Date: 20200122
  Serious: Yes (Hospitalization)
  Sender: FDA-Public Use
  Company Number: DO-PFIZER INC-2019395391

PATIENT
  Sex: Female
  Weight: 80 kg

DRUGS (2)
  1. CARBOPLATIN. [Suspect]
     Active Substance: CARBOPLATIN
     Dosage: UNK
     Dates: start: 2019, end: 2019
  2. CARBOPLATIN. [Suspect]
     Active Substance: CARBOPLATIN
     Dosage: 300 MG, WEEKLY
     Dates: start: 20190821, end: 2019

REACTIONS (7)
  - Chest pain [Unknown]
  - Flushing [Unknown]
  - Vomiting [Unknown]
  - Gastric disorder [Unknown]
  - Dyspnoea [Unknown]
  - Choking [Unknown]
  - Nausea [Unknown]

NARRATIVE: CASE EVENT DATE: 2019
